FAERS Safety Report 20110952 (Version 2)
Quarter: 2022Q1

REPORT INFORMATION
  Report Type: Spontaneous
  Country: NL (occurrence: NL)
  Receive Date: 20211124
  Receipt Date: 20220202
  Transmission Date: 20220424
  Serious: Yes (Other)
  Sender: FDA-Public Use
  Company Number: None

PATIENT
  Age: 31 Year
  Sex: Female
  Weight: 68 kg

DRUGS (3)
  1. RHOPHYLAC [Suspect]
     Active Substance: HUMAN RHO(D) IMMUNE GLOBULIN
     Indication: Rhesus incompatibility
     Dosage: INJECTION FLUID, 500IU/ML (UNITS PER MILLILITRE)
     Route: 065
     Dates: start: 20210831
  2. RHOPHYLAC [Suspect]
     Active Substance: HUMAN RHO(D) IMMUNE GLOBULIN
     Indication: Rhesus incompatibility
     Dosage: INJECTION FLUID, 500IU/ML (UNITS PER MILLILITRE)
     Route: 065
     Dates: start: 20210831
  3. ALBUTEROL [Concomitant]
     Active Substance: ALBUTEROL
     Dosage: UNK UNK, BID (2 X IN THE EVENING)
     Route: 065

REACTIONS (6)
  - Dyspnoea [Recovered/Resolved]
  - Feeling of body temperature change [Recovered/Resolved]
  - Swollen tongue [Recovered/Resolved]
  - Neurological symptom [Recovered/Resolved]
  - Dizziness [Recovered/Resolved]
  - Headache [Recovered/Resolved]

NARRATIVE: CASE EVENT DATE: 20210831
